FAERS Safety Report 11094322 (Version 1)
Quarter: 2015Q2

REPORT INFORMATION
  Report Type: Report from Study
  Country: KR (occurrence: KR)
  Receive Date: 20150506
  Receipt Date: 20150506
  Transmission Date: 20150821
  Serious: Yes (Hospitalization)
  Sender: FDA-Public Use
  Company Number: KR-OTSUKA PHARMACEUTICAL CO.-2015_000008

PATIENT
  Age: 60 Year
  Sex: Male

DRUGS (9)
  1. ASPIRIN. [Concomitant]
     Active Substance: ASPIRIN
     Indication: PRODUCT USED FOR UNKNOWN INDICATION
     Dosage: 3 DF, DAILY DOSE
     Route: 065
     Dates: start: 20140612
  2. LYRICA [Concomitant]
     Active Substance: PREGABALIN
     Indication: CEREBRAL INFARCTION
     Dosage: 2 DF, DAILY DOSE
     Route: 048
     Dates: start: 20141206
  3. VYTORIN [Concomitant]
     Active Substance: EZETIMIBE\SIMVASTATIN
     Indication: CEREBRAL INFARCTION
     Dosage: 1 DF, DAILY DOSE
     Route: 048
     Dates: start: 20140625
  4. LIPITOR [Concomitant]
     Active Substance: ATORVASTATIN CALCIUM
     Indication: PRODUCT USED FOR UNKNOWN INDICATION
     Dosage: 1 DF, DAILY DOSE
     Route: 065
     Dates: start: 20140612
  5. CURAN [Concomitant]
     Indication: PRODUCT USED FOR UNKNOWN INDICATION
     Dosage: 2 DF, DAILY DOSE
     Route: 065
     Dates: start: 20140612
  6. MUCOSTA [Concomitant]
     Active Substance: REBAMIPIDE
     Indication: CEREBRAL INFARCTION
     Dosage: 2 DF, DAILY DOSE
     Route: 048
     Dates: start: 20140625
  7. LOSARTAM [Concomitant]
     Indication: CEREBRAL INFARCTION
     Dosage: 1 DF, DAILY DOSE
     Route: 048
     Dates: start: 20140625
  8. PENIRAMIN [Concomitant]
     Indication: PRODUCT USED FOR UNKNOWN INDICATION
     Dosage: 3 DF, DAILY DOSE
     Route: 065
     Dates: start: 20140616
  9. CILOSTAZOL. [Suspect]
     Active Substance: CILOSTAZOL
     Indication: CEREBRAL INFARCTION
     Dosage: 200 MG, QD
     Route: 048
     Dates: start: 20140625

REACTIONS (1)
  - Diarrhoea [Recovered/Resolved]

NARRATIVE: CASE EVENT DATE: 20141118
